FAERS Safety Report 6219541-X (Version None)
Quarter: 2009Q2

REPORT INFORMATION
  Report Type: 
  Country: None (occurrence: None)
  Receive Date: 20090605
  Receipt Date: 20090602
  Transmission Date: 20091009
  Serious: Yes (Hospitalization)
  Sender: FDA-Public Use
  Company Number: 1000006593

PATIENT
  Age: 82 Year
  Sex: Male

DRUGS (11)
  1. LEXAPRO [Suspect]
     Indication: ANXIETY
     Dosage: 10 MG (10 MG, 1 IN 1 D), ORAL
     Route: 048
     Dates: start: 20060101, end: 20090524
  2. COUMADIN [Suspect]
     Indication: ATRIAL FIBRILLATION
  3. VITAMINS [Concomitant]
  4. ATENOLOL [Concomitant]
  5. AMLODIPINE [Concomitant]
  6. QUINAPRIL [Concomitant]
  7. DIGOXIN [Concomitant]
  8. HYZAAR [Concomitant]
  9. WELCHOL [Concomitant]
  10. GEMFIBROZIL [Concomitant]
  11. METFORMIN HYDROCHLORIDE [Concomitant]

REACTIONS (4)
  - ANXIETY [None]
  - EPISTAXIS [None]
  - HAEMATOCHEZIA [None]
  - SLEEP DISORDER [None]
